FAERS Safety Report 23562146 (Version 2)
Quarter: 2024Q1

REPORT INFORMATION
  Report Type: Report from Study
  Country: CN (occurrence: CN)
  Receive Date: 20240226
  Receipt Date: 20240301
  Transmission Date: 20240410
  Serious: Yes (Other)
  Sender: FDA-Public Use
  Company Number: CN-BRISTOL-MYERS SQUIBB COMPANY-2024-030034

PATIENT
  Sex: Male

DRUGS (2)
  1. PACLITAXEL [Suspect]
     Active Substance: PACLITAXEL
     Indication: Metastatic gastric cancer
     Dosage: 125 MG/M2, INTRAVENOUSLY, DAYS 1 AND 8, OR 250 MG/M2, INTRAVENOUSLY, DAY 1
     Route: 042
  2. APATINIB [Concomitant]
     Active Substance: APATINIB
     Indication: Metastatic gastric cancer
     Dosage: 250 OR 500 MG, ORALLY, DAYS 1-21
     Route: 048

REACTIONS (3)
  - Alopecia [Unknown]
  - Neurotoxicity [Unknown]
  - Off label use [Unknown]
